FAERS Safety Report 18730091 (Version 1)
Quarter: 2021Q1

REPORT INFORMATION
  Report Type: Spontaneous
  Country: US (occurrence: US)
  Receive Date: 20210112
  Receipt Date: 20210112
  Transmission Date: 20210419
  Serious: Yes (Hospitalization)
  Sender: FDA-Public Use
  Company Number: None

PATIENT
  Sex: Female

DRUGS (8)
  1. CARVEDILOL. [Concomitant]
     Active Substance: CARVEDILOL
  2. SPRYCEL [Concomitant]
     Active Substance: DASATINIB
  3. POT CHLORIDE [Concomitant]
     Active Substance: POTASSIUM CHLORIDE
  4. LOSARTAN POT [Concomitant]
     Active Substance: LOSARTAN POTASSIUM
  5. FUROSEMIDE. [Concomitant]
     Active Substance: FUROSEMIDE
  6. NITROFURANTIN [Concomitant]
     Active Substance: NITROFURANTOIN
  7. BUMETANIDE. [Concomitant]
     Active Substance: BUMETANIDE
  8. SPRYCEL [Suspect]
     Active Substance: DASATINIB
     Indication: CHRONIC MYELOID LEUKAEMIA
     Route: 048
     Dates: start: 20180527

REACTIONS (4)
  - Swelling [None]
  - Swelling face [None]
  - Dyspnoea [None]
  - Peripheral swelling [None]
